FAERS Safety Report 7577068-7 (Version None)
Quarter: 2011Q2

REPORT INFORMATION
  Report Type: 
  Country: None (occurrence: None)
  Receive Date: 20110628
  Receipt Date: 20110131
  Transmission Date: 20111010
  Serious: Yes (Hospitalization, Other)
  Sender: FDA-Public Use
  Company Number: US-BAYER-201034605NA

PATIENT
  Age: 31 Year
  Sex: Female
  Weight: 89.342 kg

DRUGS (5)
  1. YAZ [Suspect]
     Indication: ACNE
  2. YASMIN [Suspect]
     Indication: ORAL CONTRACEPTION
     Route: 048
     Dates: start: 20050912, end: 20080915
  3. YASMIN [Suspect]
     Indication: ACNE
  4. NEXIUM [Concomitant]
     Dosage: 40 MG, PRN
  5. YAZ [Suspect]
     Indication: ORAL CONTRACEPTION
     Route: 048
     Dates: start: 20050912, end: 20080915

REACTIONS (5)
  - INFLAMMATION [None]
  - CHOLELITHIASIS [None]
  - PAIN [None]
  - CHOLECYSTITIS [None]
  - GALLBLADDER DISORDER [None]
